FAERS Safety Report 8252145-6 (Version None)
Quarter: 2012Q2

REPORT INFORMATION
  Report Type: 
  Country: None (occurrence: None)
  Receive Date: 20120402
  Receipt Date: 20110412
  Transmission Date: 20120825
  Serious: No
  Sender: FDA-Public Use
  Company Number: US-ABBOTT-11P-163-0804430-00

PATIENT
  Sex: Male
  Weight: 86.363 kg

DRUGS (8)
  1. TESTOSTERONE [Suspect]
     Indication: BLOOD TESTOSTERONE DECREASED
     Dosage: DAILY DOSE: 2.5 GRAM(S); 1/2 PACKET DAILY
     Route: 062
     Dates: start: 20110102, end: 20110405
  2. LOSARTAN POTASSIUM [Concomitant]
     Indication: HYPERTENSION
     Dosage: DAILY DOSE: 50 MILLIGRAM(S)
     Route: 065
  3. AMLODIPINE BESILATE [Concomitant]
     Indication: HYPERTENSION
     Dosage: DAILY DOSE: 10 MILLIGRAM(S)
     Route: 065
  4. ACETYLSALICYLIC ACID [Concomitant]
     Indication: PROPHYLAXIS
     Dosage: DAILY DOSE: 162 MILLIGRAM(S)
     Route: 065
  5. METOPROLOL [Concomitant]
     Indication: HYPERTENSION
     Dosage: DAILY DOSE: 25 MILLIGRAM(S); CUT IN HALF BID
     Route: 048
  6. TESTOSTERONE [Suspect]
     Dosage: DAILY DOSE: 3.75 GRAM(S); THREE PUMPS
     Route: 062
     Dates: start: 20110406
  7. TERAZOSIN HYDROCHLORIDE [Concomitant]
     Indication: PRODUCT USED FOR UNKNOWN INDICATION
     Dosage: DAILY DOSE: 4 MILLIGRAM(S), EVERY BEDTIME
     Route: 065
  8. LISINOPRIL [Concomitant]
     Indication: HYPERTENSION
     Dosage: DAILY DOSE: 40 MILLIGRAM(S)
     Route: 065

REACTIONS (9)
  - LIMB INJURY [None]
  - FALL [None]
  - HEAD INJURY [None]
  - HEADACHE [None]
  - ARTHRALGIA [None]
  - MUSCULOSKELETAL PAIN [None]
  - LIGAMENT SPRAIN [None]
  - NECK PAIN [None]
  - NECK INJURY [None]
